FAERS Safety Report 5028566-1 (Version None)
Quarter: 2006Q2

REPORT INFORMATION
  Report Type: 
  Country: None (occurrence: None)
  Receive Date: 20060615
  Receipt Date: 20060615
  Transmission Date: 20061013
  Serious: Yes (Other)
  Sender: FDA-Public Use
  Company Number: None

PATIENT
  Sex: Female
  Weight: 44.4525 kg

DRUGS (2)
  1. FOSAMAX [Suspect]
     Indication: OSTEOPOROSIS
     Dosage: 10 MILGRAMS DAILY PO
     Route: 048
     Dates: start: 19950101, end: 20050101
  2. FOSAMAX [Suspect]
     Indication: OSTEOPOROSIS
     Dosage: 70 MILLIGRAMS WEEKLY PO
     Route: 048
     Dates: start: 20050101, end: 20060101

REACTIONS (5)
  - ARTHRALGIA [None]
  - MYALGIA [None]
  - RASH [None]
  - THERAPY NON-RESPONDER [None]
  - TONGUE GEOGRAPHIC [None]
